FAERS Safety Report 6743559-1 (Version None)
Quarter: 2010Q2

REPORT INFORMATION
  Report Type: 
  Country: None (occurrence: None)
  Receive Date: 20100525
  Receipt Date: 20100518
  Transmission Date: 20101027
  Serious: Yes (Life-Threatening)
  Sender: FDA-Public Use
  Company Number: 009789

PATIENT
  Age: 87 Year
  Sex: Male

DRUGS (3)
  1. PLETAL [Suspect]
     Dosage: 100 MG QDM
     Route: 048
     Dates: start: 20100511, end: 20100511
  2. DIOVAN [Concomitant]
  3. CILNIDIPINE (CILNIDIPINE) TABLET, 10MG [Concomitant]

REACTIONS (2)
  - DIZZINESS [None]
  - SHOCK [None]
